FAERS Safety Report 5158345-6 (Version None)
Quarter: 2006Q4

REPORT INFORMATION
  Report Type: 
  Country: None (occurrence: None)
  Receive Date: 20061116
  Receipt Date: 20061102
  Transmission Date: 20070319
  Serious: Yes (Life-Threatening)
  Sender: FDA-Public Use
  Company Number: DSK-2006-02286

PATIENT
  Age: 12 Year
  Sex: Female

DRUGS (3)
  1. EVOXAC [Suspect]
     Indication: SJOGREN'S SYNDROME
     Dosage: 30 + 60  MG (30 MG, 1 IN 1 D), PER ORAL - SEE IMAGE
     Route: 048
     Dates: start: 20051022, end: 20051110
  2. EVOXAC [Suspect]
     Indication: SJOGREN'S SYNDROME
     Dosage: 30 + 60  MG (30 MG, 1 IN 1 D), PER ORAL - SEE IMAGE
     Route: 048
     Dates: start: 20051111, end: 20060107
  3. PAROTIN (SALIVARY GLAND HORMONE (SALIVARY GLAND HORMONE) [Concomitant]

REACTIONS (2)
  - INTERSTITIAL LUNG DISEASE [None]
  - THERAPY NON-RESPONDER [None]
